FAERS Safety Report 11824361 (Version 2)
Quarter: 2015Q4

REPORT INFORMATION
  Report Type: Spontaneous
  Country: US (occurrence: US)
  Receive Date: 20151210
  Receipt Date: 20151217
  Transmission Date: 20160305
  Serious: Yes (Death)
  Sender: FDA-Public Use
  Company Number: US-PFIZER INC-2015424771

PATIENT
  Age: 71 Year
  Sex: Male

DRUGS (2)
  1. DEXTROMETHORPHAN HYDROBROMIDE/GUAIFENESIN [Suspect]
     Active Substance: DEXTROMETHORPHAN HYDROBROMIDE\GUAIFENESIN
     Dosage: UNK
     Route: 048
  2. MORPHINE SULFATE. [Suspect]
     Active Substance: MORPHINE SULFATE
     Dosage: UNK
     Route: 048

REACTIONS (3)
  - Toxicity to various agents [None]
  - Death [Fatal]
  - Adverse drug reaction [None]

NARRATIVE: CASE EVENT DATE: 2014
